FAERS Safety Report 5370763-X (Version None)
Quarter: 2007Q2

REPORT INFORMATION
  Report Type: 
  Country: None (occurrence: None)
  Receive Date: 20070626
  Receipt Date: 20070621
  Transmission Date: 20071010
  Serious: Yes (Other)
  Sender: FDA-Public Use
  Company Number: A0647690A

PATIENT
  Age: 66 Year
  Sex: Female
  Weight: 75.9 kg

DRUGS (8)
  1. VALTREX [Suspect]
     Indication: HERPES SIMPLEX
     Route: 048
  2. INSULIN [Concomitant]
  3. TRAZODONE HCL [Concomitant]
     Dosage: 100MG AT NIGHT
  4. FUROSEMIDE [Concomitant]
  5. K-TAB [Concomitant]
  6. ZETIA [Concomitant]
  7. NOVOLOG [Concomitant]
  8. LANTUS [Concomitant]

REACTIONS (5)
  - DEHYDRATION [None]
  - DIABETIC KETOACIDOSIS [None]
  - DIARRHOEA [None]
  - MALAISE [None]
  - VOMITING [None]
